FAERS Safety Report 20643197 (Version 3)
Quarter: 2022Q2

REPORT INFORMATION
  Report Type: Spontaneous
  Country: US (occurrence: US)
  Receive Date: 20220328
  Receipt Date: 20220613
  Transmission Date: 20220721
  Serious: Yes (Other)
  Sender: FDA-Public Use
  Company Number: US-JNJFOC-20220339600

PATIENT
  Age: 27 Year
  Sex: Female
  Weight: 59.020 kg

DRUGS (1)
  1. STELARA [Suspect]
     Active Substance: USTEKINUMAB
     Indication: Colitis ulcerative
     Route: 058
     Dates: start: 2021

REACTIONS (7)
  - Autoimmune disorder [Unknown]
  - Feeling abnormal [Unknown]
  - Cough [Unknown]
  - COVID-19 [Unknown]
  - Arthralgia [Unknown]
  - Fatigue [Unknown]
  - Mobility decreased [Unknown]

NARRATIVE: CASE EVENT DATE: 20211201
